FAERS Safety Report 8657387 (Version 3)
Quarter: 2013Q4

REPORT INFORMATION
  Report Type: Spontaneous
  Country: US (occurrence: US)
  Receive Date: 20120710
  Receipt Date: 20131107
  Transmission Date: 20140711
  Serious: Yes (Disabling)
  Sender: FDA-Public Use
  Company Number: US-009507513-2012SP035445

PATIENT
  Age: 14 Year
  Sex: Female

DRUGS (2)
  1. NOXAFIL [Suspect]
     Indication: FUNGAL INFECTION
     Dosage: 400 MG, BID
     Route: 048
  2. AMPHOTERICIN B (+) CHOLESTEROL (+) DISTEAROYLPHOSPHATIDYLGLYCEROL (+) [Concomitant]
     Indication: ERYTHEMA
     Dosage: 250 MG, QD
     Route: 042

REACTIONS (1)
  - Disease progression [Unknown]
